FAERS Safety Report 18703824 (Version 13)
Quarter: 2022Q2

REPORT INFORMATION
  Report Type: Report from Study
  Country: DE (occurrence: DE)
  Receive Date: 20210105
  Receipt Date: 20220524
  Transmission Date: 20220721
  Serious: Yes (Hospitalization, Other)
  Sender: FDA-Public Use
  Company Number: DE-TAKEDA-DE202029369

PATIENT
  Age: 77 Year
  Sex: Male

DRUGS (11)
  1. VON WILLEBRAND FACTOR HUMAN [Suspect]
     Active Substance: VON WILLEBRAND FACTOR HUMAN
     Indication: Von Willebrand^s disease
     Dosage: 2600 INTERNATIONAL UNIT, 1X/2WKS
     Route: 042
     Dates: start: 20200907, end: 20210201
  2. VON WILLEBRAND FACTOR HUMAN [Suspect]
     Active Substance: VON WILLEBRAND FACTOR HUMAN
     Dosage: 1300 INTERNATIONAL UNIT, Q2WEEKS
     Route: 042
  3. VON WILLEBRAND FACTOR HUMAN [Suspect]
     Active Substance: VON WILLEBRAND FACTOR HUMAN
     Dosage: 2600 INTERNATIONAL UNIT, 1/WEEK
     Route: 042
     Dates: start: 20190907, end: 20210222
  4. VON WILLEBRAND FACTOR HUMAN [Suspect]
     Active Substance: VON WILLEBRAND FACTOR HUMAN
     Dosage: 2600 INTERNATIONAL UNIT, 2/WEEK
     Route: 042
     Dates: start: 20200907
  5. VON WILLEBRAND FACTOR HUMAN [Suspect]
     Active Substance: VON WILLEBRAND FACTOR HUMAN
     Dosage: 2600 INTERNATIONAL UNIT, 2/WEEK
     Route: 042
     Dates: start: 20200907
  6. VON WILLEBRAND FACTOR HUMAN [Suspect]
     Active Substance: VON WILLEBRAND FACTOR HUMAN
     Dosage: 1300 INTERNATIONAL UNIT, 1/WEEK
     Route: 042
     Dates: start: 20200907
  7. VON WILLEBRAND FACTOR HUMAN [Suspect]
     Active Substance: VON WILLEBRAND FACTOR HUMAN
     Dosage: 1300 INTERNATIONAL UNIT, 1/WEEK
     Route: 042
     Dates: start: 20200907
  8. VON WILLEBRAND FACTOR HUMAN [Suspect]
     Active Substance: VON WILLEBRAND FACTOR HUMAN
     Dosage: 2600 INTERNATIONAL UNIT, 2/WEEK
     Route: 042
     Dates: start: 20200907
  9. VON WILLEBRAND FACTOR HUMAN [Suspect]
     Active Substance: VON WILLEBRAND FACTOR HUMAN
     Dosage: 2600 INTERNATIONAL UNIT, Q2WEEKS
     Route: 042
     Dates: start: 20201102, end: 20201102
  10. VON WILLEBRAND FACTOR HUMAN [Suspect]
     Active Substance: VON WILLEBRAND FACTOR HUMAN
     Dosage: 2600 INTERNATIONAL UNIT, Q2WEEKS
     Route: 042
     Dates: start: 20201102, end: 20201102
  11. VON WILLEBRAND FACTOR HUMAN [Suspect]
     Active Substance: VON WILLEBRAND FACTOR HUMAN
     Dosage: 2600 INTERNATIONAL UNIT, 2/WEEK
     Route: 042
     Dates: start: 20220201

REACTIONS (14)
  - Syncope [Not Recovered/Not Resolved]
  - Haematochezia [Recovered/Resolved]
  - Gastrointestinal angiectasia [Recovered/Resolved]
  - Asthenia [Recovered/Resolved]
  - Abdominal pain [Recovered/Resolved]
  - Hospitalisation [Recovered/Resolved]
  - Haemoglobin decreased [Recovering/Resolving]
  - Eye haemorrhage [Recovered/Resolved]
  - Abscess limb [Recovered/Resolved]
  - Fatigue [Recovered/Resolved]
  - Blood iron decreased [Recovered/Resolved]
  - Nausea [Recovered/Resolved]
  - Vomiting [Recovered/Resolved]
  - Off label use [Unknown]

NARRATIVE: CASE EVENT DATE: 20200907
